FAERS Safety Report 23211512 (Version 1)
Quarter: 2023Q4

REPORT INFORMATION
  Report Type: Report from Study
  Country: CA (occurrence: CA)
  Receive Date: 20231121
  Receipt Date: 20231121
  Transmission Date: 20240109
  Serious: Yes (Death, Other)
  Sender: FDA-Public Use
  Company Number: CA-AstraZeneca-2023A262776

PATIENT
  Age: 58 Year
  Sex: Female

DRUGS (1)
  1. ENHERTU [Suspect]
     Active Substance: FAM-TRASTUZUMAB DERUXTECAN-NXKI
     Indication: HER2 positive breast cancer
     Dosage: 141 MG
     Route: 042
     Dates: start: 20230922, end: 202311

REACTIONS (1)
  - Death [Fatal]

NARRATIVE: CASE EVENT DATE: 20231101
